FAERS Safety Report 4487108-X (Version None)
Quarter: 2004Q4

REPORT INFORMATION
  Report Type: 
  Country: None (occurrence: None)
  Receive Date: 20041027
  Receipt Date: 20041018
  Transmission Date: 20050328
  Serious: Yes (Hospitalization)
  Sender: FDA-Public Use
  Company Number: GB-GLAXOSMITHKLINE-B0349201A

PATIENT
  Sex: Female

DRUGS (8)
  1. LAMIVUDINE [Suspect]
     Route: 065
     Dates: start: 20040630, end: 20040823
  2. NEVIRAPINE [Suspect]
     Indication: HIV INFECTION
     Dosage: .5TAB TWICE PER DAY
     Route: 048
     Dates: start: 20040630, end: 20040823
  3. STAVUDINE [Suspect]
     Indication: HIV INFECTION
     Route: 065
     Dates: start: 20040630, end: 20040823
  4. BACTRIM [Concomitant]
     Indication: PNEUMOCYSTIS CARINII PNEUMONIA
     Dosage: 2TAB TWICE PER DAY
     Route: 048
  5. LEVOTHYROXINE SODIUM [Concomitant]
     Dosage: 75MG PER DAY
     Route: 065
  6. VITAMIN B-12 [Concomitant]
     Route: 065
  7. VITAMIN C [Concomitant]
     Route: 065
  8. FOLIC ACID [Concomitant]
     Dosage: 5MG PER DAY
     Route: 065

REACTIONS (6)
  - DIARRHOEA [None]
  - HEPATIC FAILURE [None]
  - INTESTINAL ULCER [None]
  - STEVENS-JOHNSON SYNDROME [None]
  - TOXIC DILATATION OF COLON [None]
  - TOXIC EPIDERMAL NECROLYSIS [None]
